FAERS Safety Report 4873425-8 (Version None)
Quarter: 2005Q4

REPORT INFORMATION
  Report Type: 
  Country: None (occurrence: None)
  Receive Date: 20051201
  Receipt Date: 20050820
  Transmission Date: 20060501
  Serious: No
  Sender: FDA-Public Use
  Company Number: 2005PV001325

PATIENT
  Age: 66 Year
  Sex: Female
  Weight: 81.1939 kg

DRUGS (11)
  1. BYETTA [Suspect]
     Indication: DIABETES MELLITUS NON-INSULIN-DEPENDENT
     Dosage: 5 MCG; 10 MCG : BID; SC
     Route: 058
     Dates: start: 20050726, end: 20050824
  2. BYETTA [Suspect]
     Indication: DIABETES MELLITUS NON-INSULIN-DEPENDENT
     Dosage: 5 MCG; 10 MCG : BID; SC
     Route: 058
     Dates: start: 20050825
  3. GLYNASE [Concomitant]
  4. AVANDIA [Concomitant]
  5. PROTONIX [Concomitant]
  6. AVAPRO [Concomitant]
  7. WELLBUTRIN [Concomitant]
  8. LASIX [Concomitant]
  9. EVISTA [Concomitant]
  10. REGLAN [Concomitant]
  11. AVANDIA [Concomitant]

REACTIONS (6)
  - BLOOD GLUCOSE FLUCTUATION [None]
  - DYSPEPSIA [None]
  - NAUSEA [None]
  - REFLUX OESOPHAGITIS [None]
  - UNDERDOSE [None]
  - WEIGHT DECREASED [None]
